FAERS Safety Report 8771354 (Version 2)
Quarter: 2012Q4

REPORT INFORMATION
  Report Type: 
  Country: AR (occurrence: AR)
  Receive Date: 20120906
  Receipt Date: 20120906
  Transmission Date: 20130627
  Serious: Yes (Other)
  Sender: FDA-Public Use
  Company Number: PHHY2012AR040066

PATIENT
  Age: 77 Year
  Sex: Female

DRUGS (1)
  1. DIOVAN [Suspect]
     Indication: HYPERTENSION
     Dosage: Half a tablet (320 mg), daily

REACTIONS (7)
  - Joint dislocation [Recovering/Resolving]
  - Joint injury [Recovering/Resolving]
  - Fall [Recovering/Resolving]
  - Blood pressure systolic increased [Recovered/Resolved]
  - Stress [Unknown]
  - Poor quality sleep [Unknown]
  - Wrong technique in drug usage process [Unknown]
